FAERS Safety Report 5744909-5 (Version None)
Quarter: 2008Q2

REPORT INFORMATION
  Report Type: 
  Country: None (occurrence: None)
  Receive Date: 20080516
  Receipt Date: 20080502
  Transmission Date: 20081010
  Serious: Yes (Hospitalization)
  Sender: FDA-Public Use
  Company Number: 2008001055

PATIENT
  Age: 88 Year
  Sex: Female

DRUGS (13)
  1. ERLOTINIB (ERLOTINIB HCL) (TABLET) (ERLOTINIB HCL) [Suspect]
     Indication: NON-SMALL CELL LUNG CANCER
     Dosage: 150 MG, QD, ORAL
     Route: 048
     Dates: start: 20050818, end: 20080117
  2. EMGESAN (MAGNESIUM HYDROXIDE) [Concomitant]
  3. EMCONCOR (BISOPROLOL) [Concomitant]
  4. ISOSORBIDE MONONITRATE [Concomitant]
  5. PANTOPRAZOLE SODIUM [Concomitant]
  6. DANAZOL [Concomitant]
  7. ASPIRIN [Concomitant]
  8. CITALOPRAM HYDROBROMIDE [Concomitant]
  9. FUROSEMIDE [Concomitant]
  10. OXYCONTIN [Concomitant]
  11. TRAMADOL HCL [Concomitant]
  12. ACETAMINOPHEN [Concomitant]
  13. LYRICA [Concomitant]

REACTIONS (7)
  - BACTERIAL CULTURE POSITIVE [None]
  - FALL [None]
  - LIMB INJURY [None]
  - POST PROCEDURAL HAEMORRHAGE [None]
  - SKIN GRAFT [None]
  - SKIN ULCER [None]
  - WOUND INFECTION STAPHYLOCOCCAL [None]
